FAERS Safety Report 14632334 (Version 1)
Quarter: 2018Q1

REPORT INFORMATION
  Report Type: Spontaneous
  Country: GB (occurrence: GB)
  Receive Date: 20180313
  Receipt Date: 20180313
  Transmission Date: 20180509
  Serious: Yes (Other)
  Sender: FDA-Public Use
  Company Number: GB-TEVA-2018-GB-867517

PATIENT
  Age: 42 Year
  Sex: Male
  Weight: 76 kg

DRUGS (6)
  1. REFRESH CELLUVISC [Concomitant]
     Active Substance: CARBOXYMETHYLCELLULOSE SODIUM
     Dosage: 1-2 DROPS AS DIRECTED.
     Route: 065
  2. DOXYCYCLINE. [Suspect]
     Active Substance: DOXYCYCLINE
     Route: 065
  3. AMOXICILLIN. [Concomitant]
     Active Substance: AMOXICILLIN
     Route: 065
  4. NASOFAN AQUEOUS [Concomitant]
     Active Substance: FLUTICASONE PROPIONATE
     Dosage: 2 DOSAGE FORMS DAILY; AS DIRECTED.
     Route: 065
  5. SIMVASTATIN. [Concomitant]
     Active Substance: SIMVASTATIN
     Dosage: 1 DOSAGE FORMS DAILY;
     Route: 065
  6. OLOPATADINE. [Concomitant]
     Active Substance: OLOPATADINE
     Dosage: 2 GTT DAILY;
     Route: 065

REACTIONS (1)
  - Palpitations [Recovered/Resolved]
